FAERS Safety Report 6084995-9 (Version None)
Quarter: 2009Q1

REPORT INFORMATION
  Report Type: 
  Country: None (occurrence: None)
  Receive Date: 20090220
  Receipt Date: 20090213
  Transmission Date: 20090719
  Serious: No
  Sender: FDA-Public Use
  Company Number: NZ-JNJFOC-20090203767

PATIENT
  Age: 16 Year
  Sex: Female

DRUGS (1)
  1. DURAGESIC-100 [Suspect]
     Indication: JUVENILE ARTHRITIS
     Route: 062

REACTIONS (2)
  - BREAKTHROUGH PAIN [None]
  - INADEQUATE ANALGESIA [None]
